FAERS Safety Report 9526216 (Version 1)
Quarter: 2013Q3

REPORT INFORMATION
  Report Type: Report from Study
  Country: US (occurrence: US)
  Receive Date: 20130916
  Receipt Date: 20130916
  Transmission Date: 20140515
  Serious: Yes (Hospitalization)
  Sender: FDA-Public Use
  Company Number: US-ROCHE-1267904

PATIENT
  Age: 54 Year
  Sex: Female

DRUGS (48)
  1. HERCEPTIN [Suspect]
     Indication: BREAST CANCER
     Dosage: AS DIRECTED
     Route: 041
     Dates: start: 1999
  2. HERCEPTIN [Suspect]
     Indication: BONE CANCER
     Route: 041
  3. HERCEPTIN [Suspect]
     Dosage: CYCLE 2 DAY 1
     Route: 065
  4. HERCEPTIN [Suspect]
     Dosage: FIRST CYCLE
     Route: 065
     Dates: start: 20111221
  5. KYTRIL [Suspect]
     Indication: BREAST CANCER
     Dosage: TAKE 1 TWICE A DAY WITH ORAL CHEMO
     Route: 048
  6. MS CONTIN [Concomitant]
     Route: 065
  7. MSIR [Concomitant]
     Dosage: 3 EVERY THREE TO 4 HOURS WITH LITTLE MORE FREQUENCY NOW
     Route: 065
  8. AUGMENTIN [Concomitant]
     Dosage: 500-125MG 1 TABLET THREE TIMES A DAY
     Route: 048
  9. ALEVE [Concomitant]
     Dosage: 1 TABLET TWICE A DAY PRN
     Route: 048
  10. CALCIUM CARBONATE/CHOLECALCIFEROL [Concomitant]
     Dosage: 500/400 MG TABLETS 1 TABLET THREE TIMES A DAY
     Route: 048
  11. CLINDAMYCIN HCL [Concomitant]
     Route: 048
  12. CYCLOBENZAPRINE HCL [Concomitant]
     Dosage: 1 PER DAY AT BEDTIME
     Route: 048
  13. EMLA [Concomitant]
     Dosage: 1 TOPICAL APPLICATION AS DIRECTED
     Route: 061
  14. FLUOXETINE HCL [Concomitant]
     Route: 048
  15. LASIX [Concomitant]
     Dosage: TAKE HALD A TABLET ORALLY AS DIRECTED
     Route: 048
  16. LEVOTHYROXINE SODIUM [Concomitant]
     Route: 048
  17. LOVASTATIN [Concomitant]
     Dosage: WITH EVENING MEALS
     Route: 048
  18. METFORMIN HYDROCHLORIDE [Concomitant]
     Route: 048
  19. ONDANSETRON HCL [Concomitant]
     Indication: NAUSEA
     Dosage: 1 EVERY 8 HOURS PRN
     Route: 048
  20. POTASSIUM CHLORIDE [Concomitant]
     Dosage: SUST RELEASE TAKE 1 DAILY
     Route: 048
  21. PREVACID [Concomitant]
     Dosage: ENTERIC COATED CAPSULE
     Route: 048
  22. REQUIP [Concomitant]
     Dosage: AT BEDTIME
     Route: 048
  23. VITAMIN D3 [Concomitant]
     Route: 048
  24. XELODA [Concomitant]
     Dosage: TAKE 3 (1000MG/M2) PO BID, 1000 MG /M2 PO BID DAY ON DAYS 1 TO 14 FOLLOWED BY 1 WEEK REST PERIOD, RE
     Route: 048
  25. XELODA [Concomitant]
     Dosage: 1.5G TWICE A DAY FOR TWO WEEKS ON AND THEN OFF FOR ONE WEEK
     Route: 048
  26. XELODA [Concomitant]
     Dosage: 3 G DAILY TWO WEEKS ON AND OFF FOR ONE WEEK
     Route: 048
     Dates: start: 200912
  27. ALPRAZOLAM [Concomitant]
     Dosage: 1 PER DAY AT BEDTIME
     Route: 048
  28. TAXOL [Concomitant]
     Route: 065
     Dates: start: 1999
  29. RADIATION [Concomitant]
     Route: 065
     Dates: start: 1999
  30. ARIMIDEX [Concomitant]
  31. AROMASIN [Concomitant]
  32. FASLODEX [Concomitant]
  33. NAVELBINE [Concomitant]
  34. GEMZAR [Concomitant]
  35. DOXORUBICIN HYDROCHLORIDE [Concomitant]
  36. AREDIA [Concomitant]
  37. ABRAXANE [Concomitant]
     Route: 065
  38. ERIBULIN [Concomitant]
     Dosage: ON DAY 1 AND 8
     Route: 065
  39. AVASTIN [Concomitant]
     Route: 065
  40. TAXOTERE [Concomitant]
     Dosage: FIRST CYCLE
     Route: 065
     Dates: start: 20111221
  41. TYKERB [Concomitant]
     Dosage: 1250MG DAILY
     Route: 065
     Dates: start: 200912
  42. MEGACE [Concomitant]
     Dosage: 10CC A DAY
     Route: 065
     Dates: start: 201106
  43. XGEVA [Concomitant]
     Route: 065
     Dates: start: 20111019
  44. CYTOXAN [Concomitant]
     Route: 065
     Dates: start: 20111221
  45. CARBOPLATIN [Concomitant]
  46. METHOTREXATE [Concomitant]
  47. 5-FLUOROURACIL [Concomitant]
  48. NEULASTA [Concomitant]
     Route: 065

REACTIONS (55)
  - Internal fixation of fracture [Unknown]
  - Jaw operation [Unknown]
  - Spinal fusion surgery [Unknown]
  - Hip fracture [Unknown]
  - Medical device implantation [Unknown]
  - Disease progression [Unknown]
  - Drug ineffective [Unknown]
  - Upper limb fracture [Unknown]
  - Femur fracture [Unknown]
  - Palmar-plantar erythrodysaesthesia syndrome [Unknown]
  - Osteonecrosis of jaw [Unknown]
  - Neuropathy peripheral [Unknown]
  - Back pain [Unknown]
  - Radiculopathy [Unknown]
  - Pain [Unknown]
  - Tumour marker increased [Unknown]
  - Sciatica [Unknown]
  - Back pain [Unknown]
  - Fracture nonunion [Unknown]
  - Skin toxicity [Unknown]
  - Fatigue [Unknown]
  - Headache [Unknown]
  - Bone lesion [Unknown]
  - Pulmonary mass [Unknown]
  - Pain [Unknown]
  - Fall [Unknown]
  - Patella fracture [Unknown]
  - Arthralgia [Unknown]
  - Arthralgia [Unknown]
  - Feeling abnormal [Unknown]
  - Pain in extremity [Unknown]
  - Neuropathy peripheral [Unknown]
  - Metastases to spine [Unknown]
  - Extradural neoplasm [Unknown]
  - Back pain [Unknown]
  - Arthralgia [Unknown]
  - Weight increased [Unknown]
  - Musculoskeletal discomfort [Unknown]
  - Arthralgia [Unknown]
  - Hypoaesthesia [Unknown]
  - Pain in jaw [Unknown]
  - Jaw disorder [Unknown]
  - Musculoskeletal chest pain [Unknown]
  - Bone marrow disorder [Unknown]
  - Arthritis [Unknown]
  - Intervertebral disc degeneration [Unknown]
  - Fall [Unknown]
  - Contusion [Unknown]
  - Musculoskeletal discomfort [Unknown]
  - Sensory disturbance [Unknown]
  - Nail toxicity [Unknown]
  - Fatigue [Unknown]
  - Vision blurred [Unknown]
  - Hypoaesthesia [Unknown]
  - Jaw disorder [Unknown]
